FAERS Safety Report 6251310-7 (Version None)
Quarter: 2009Q2

REPORT INFORMATION
  Report Type: 
  Country: None (occurrence: None)
  Receive Date: 20090630
  Receipt Date: 20090625
  Transmission Date: 20091009
  Serious: Yes (Death, Hospitalization, Other)
  Sender: FDA-Public Use
  Company Number: PHMT2006CA01612

PATIENT
  Sex: Male

DRUGS (29)
  1. CLOZARIL [Suspect]
     Indication: SCHIZOPHRENIA
     Dosage: 300 MG/DAY
     Route: 048
     Dates: start: 20050615, end: 20080711
  2. CLOZARIL [Suspect]
     Indication: PSYCHOTIC DISORDER
     Dosage: 100 MG, BID
     Route: 048
  3. CLOZARIL [Suspect]
     Dosage: 50 MG, BID
  4. CLOZARIL [Suspect]
     Dosage: 25 MG, BID
     Route: 048
     Dates: start: 20081017, end: 20090617
  5. ZITHROMAX [Suspect]
  6. EPIVAL [Concomitant]
     Dosage: 825 MG/DAY
  7. EPIVAL [Concomitant]
     Dosage: 250 MG
  8. CLONAZEPAM [Concomitant]
     Dosage: 1 MG, QHS
  9. FLOVENT [Concomitant]
  10. SEREVENT [Concomitant]
  11. SPIRIVA [Concomitant]
  12. VENTOLIN [Concomitant]
     Dosage: UNK, PRN
  13. LASIX [Concomitant]
     Dosage: 100 MG, BID
  14. HYDROCHLOROTHIAZIDE [Concomitant]
     Dosage: 12.5 MG, QOD
  15. K-DUR [Concomitant]
     Dosage: 20 MEQ, QD
  16. PANTOPRAZOLE SODIUM [Concomitant]
     Dosage: 40 UNK, BID
  17. FLOMAX [Concomitant]
     Dosage: 4 MG DAILY
  18. DITROPAN [Concomitant]
     Dosage: 5 MG, BID
  19. DOCUSATE [Concomitant]
  20. MILK OF MAGNESIA TAB [Concomitant]
  21. ROBINUL [Concomitant]
     Dosage: UNK, PRN
  22. MORPHINE [Concomitant]
     Dosage: UNK, PRN
  23. VALIUM [Concomitant]
     Dosage: UNK, PRN
  24. LOXAPAC [Concomitant]
     Dosage: UNK, PRN
  25. ATASOL [Concomitant]
     Dosage: 650 MG, QID
  26. PREDNISONE TAB [Concomitant]
     Dosage: 15 MG
  27. PREDNISONE TAB [Concomitant]
     Dosage: 10 MG
  28. COLACE [Concomitant]
  29. ATROVENT [Concomitant]

REACTIONS (17)
  - BICYTOPENIA [None]
  - BRACHIAL PLEXUS INJURY [None]
  - BRONCHOPNEUMONIA [None]
  - CARDIAC FAILURE [None]
  - HYPERTHERMIA [None]
  - LEUKOPENIA [None]
  - LUNG NEOPLASM [None]
  - LYMPHOMA [None]
  - MENTAL DISORDER [None]
  - NEUTROPENIA [None]
  - NEUTROPHIL COUNT DECREASED [None]
  - PALLIATIVE CARE [None]
  - PNEUMONIA [None]
  - PSYCHIATRIC DECOMPENSATION [None]
  - SUPERINFECTION [None]
  - THROMBOCYTOPENIA [None]
  - WHITE BLOOD CELL COUNT DECREASED [None]
